FAERS Safety Report 6594406-2 (Version None)
Quarter: 2010Q1

REPORT INFORMATION
  Report Type: 
  Country: None (occurrence: None)
  Receive Date: 20100222
  Receipt Date: 20100215
  Transmission Date: 20100710
  Serious: Yes (Hospitalization)
  Sender: FDA-Public Use
  Company Number: B0629710A

PATIENT
  Sex: Female
  Weight: 60 kg

DRUGS (12)
  1. VALTREX [Suspect]
     Indication: HERPES ZOSTER
     Dosage: 500MG TWICE PER DAY
     Route: 048
     Dates: start: 20091119
  2. HYDREA [Suspect]
     Indication: THROMBOCYTOSIS
     Route: 048
     Dates: start: 20091121
  3. FAMOTIDINE [Suspect]
     Indication: GASTRITIS
     Dosage: 10MG PER DAY
     Route: 048
     Dates: start: 20091121
  4. DEPAS [Concomitant]
     Indication: INSOMNIA
     Dosage: 1MG PER DAY
     Route: 048
  5. ALOSENN [Concomitant]
     Dosage: 1G PER DAY
     Route: 048
  6. EPINASTINE HYDROCHLORIDE [Concomitant]
     Indication: PRURITUS
     Dosage: 20MG PER DAY
     Route: 048
     Dates: start: 20091121
  7. ASPIRIN [Concomitant]
     Indication: ANGINA PECTORIS
     Dosage: 100MG PER DAY
     Route: 048
     Dates: start: 20091121
  8. RENAGEL [Concomitant]
     Indication: PHOSPHORUS METABOLISM DISORDER
     Dosage: 750MG PER DAY
     Route: 048
     Dates: start: 20091121
  9. ELCITONIN [Concomitant]
     Route: 030
  10. UNKNOWN DRUG [Concomitant]
     Route: 042
  11. VIDARABINE [Concomitant]
     Route: 031
  12. UNKNOWN DRUG [Concomitant]
     Route: 061

REACTIONS (6)
  - ALTERED STATE OF CONSCIOUSNESS [None]
  - DISORIENTATION [None]
  - DYSARTHRIA [None]
  - ENCEPHALOPATHY [None]
  - FALL [None]
  - OVERDOSE [None]
